FAERS Safety Report 7439109-7 (Version None)
Quarter: 2011Q2

REPORT INFORMATION
  Report Type: 
  Country: None (occurrence: None)
  Receive Date: 20110427
  Receipt Date: 20110414
  Transmission Date: 20111010
  Serious: Yes (Hospitalization)
  Sender: FDA-Public Use
  Company Number: JP-JNJFOC-20110407268

PATIENT
  Age: 36 Year
  Sex: Female

DRUGS (4)
  1. RISPERDAL [Concomitant]
     Route: 048
  2. INVEGA [Suspect]
     Indication: PRODUCT USED FOR UNKNOWN INDICATION
     Route: 048
  3. LENDORMIN [Concomitant]
     Route: 048
  4. FLUDECASIN [Concomitant]
     Route: 030

REACTIONS (3)
  - TACHYCARDIA [None]
  - LOSS OF CONSCIOUSNESS [None]
  - OVERDOSE [None]
